FAERS Safety Report 6842355-4 (Version None)
Quarter: 2010Q3

REPORT INFORMATION
  Report Type: 
  Country: None (occurrence: None)
  Receive Date: 20100709
  Receipt Date: 20100630
  Transmission Date: 20110219
  Serious: Yes (Hospitalization, Other)
  Sender: FDA-Public Use
  Company Number: 014729

PATIENT
  Sex: Female

DRUGS (8)
  1. KEPPRA [Suspect]
     Indication: EPILEPSY
     Dosage: ORAL
     Route: 048
     Dates: start: 20091001, end: 20100404
  2. LAMOTRIGINE [Suspect]
     Indication: EPILEPSY
     Dosage: ORAL
     Route: 048
  3. SELOKENZOC [Concomitant]
  4. COZAAR [Concomitant]
  5. SIMVASTATIN [Concomitant]
  6. METHOTREXATE [Concomitant]
  7. FOLACIN [Concomitant]
  8. IBRUPROFEN [Concomitant]

REACTIONS (9)
  - ATAXIA [None]
  - BALANCE DISORDER [None]
  - BRONCHITIS [None]
  - CEREBRAL ISCHAEMIA [None]
  - DEPRESSED MOOD [None]
  - DIZZINESS [None]
  - DRUG LEVEL INCREASED [None]
  - MICROANGIOPATHY [None]
  - NYSTAGMUS [None]
